FAERS Safety Report 5022910-7 (Version None)
Quarter: 2006Q2

REPORT INFORMATION
  Report Type: 
  Country: None (occurrence: None)
  Receive Date: 20060426
  Receipt Date: 20060309
  Transmission Date: 20061013
  Serious: Yes (Other)
  Sender: FDA-Public Use
  Company Number: 2006035137

PATIENT
  Age: 74 Year
  Sex: Female
  Weight: 49.8957 kg

DRUGS (8)
  1. LYRICA [Suspect]
     Indication: NEURALGIA
     Dosage: 200 MG (100 MG,2 IN 1 D),ORAL
     Route: 048
     Dates: start: 20050101
  2. VITAMINS (VITAMINS) [Suspect]
     Indication: ILL-DEFINED DISORDER
     Dates: end: 20060101
  3. MINERALS NOS (MINERALS NOS) [Suspect]
     Indication: ILL-DEFINED DISORDER
     Dates: end: 20060101
  4. NEXIUM [Concomitant]
  5. MONTELUKAST SODIUM (MONTELUKAST SODIUM) [Concomitant]
  6. MOBIC [Concomitant]
  7. PAXIL [Concomitant]
  8. LORCET-HD [Concomitant]

REACTIONS (3)
  - MALAISE [None]
  - SKIN ULCER [None]
  - STOMACH DISCOMFORT [None]
